FAERS Safety Report 6517725-4 (Version None)
Quarter: 2009Q4

REPORT INFORMATION
  Report Type: 
  Country: None (occurrence: None)
  Receive Date: 20091218
  Receipt Date: 20091204
  Transmission Date: 20100525
  Serious: Yes (Hospitalization)
  Sender: FDA-Public Use
  Company Number: 2009AL007709

PATIENT
  Age: 37 Year
  Sex: Male

DRUGS (4)
  1. DIAZEPAM TAB [Suspect]
     Dosage: 5 MG; PRN; PO
     Route: 048
  2. ESCITALOPRAM [Concomitant]
  3. CLOZAPINE [Concomitant]
  4. ARIPIPRAZOLE [Concomitant]

REACTIONS (8)
  - ABDOMINAL PAIN UPPER [None]
  - CEREBROVASCULAR ACCIDENT [None]
  - DIARRHOEA INFECTIOUS [None]
  - DIZZINESS [None]
  - HEADACHE [None]
  - HEART RATE INCREASED [None]
  - NAUSEA [None]
  - VOMITING [None]
